FAERS Safety Report 25482606 (Version 2)
Quarter: 2025Q3

REPORT INFORMATION
  Report Type: Report from Study
  Country: CA (occurrence: CA)
  Receive Date: 20250626
  Receipt Date: 20250719
  Transmission Date: 20251020
  Serious: Yes (Hospitalization, Other)
  Sender: CELLTRION
  Company Number: CA-CELLTRION INC.-2024CA014129

PATIENT

DRUGS (2)
  1. ADALIMUMAB-AATY [Suspect]
     Active Substance: ADALIMUMAB-AATY
     Indication: Hidradenitis
     Dosage: 40 MILLIGRAM, 1/WEEK
     Route: 058
     Dates: start: 20240313
  2. ADALIMUMAB-AATY [Suspect]
     Active Substance: ADALIMUMAB-AATY
     Dosage: 80 MG, WEEKLY
     Route: 058
     Dates: start: 20240313

REACTIONS (6)
  - Intestinal perforation [Unknown]
  - Gastrointestinal infection [Unknown]
  - Therapy interrupted [Unknown]
  - Product distribution issue [Unknown]
  - Intentional product use issue [Unknown]
  - Intentional dose omission [Unknown]

NARRATIVE: CASE EVENT DATE: 20250601
